FAERS Safety Report 21232452 (Version 2)
Quarter: 2022Q3

REPORT INFORMATION
  Report Type: Spontaneous
  Country: US (occurrence: US)
  Receive Date: 20220819
  Receipt Date: 20220909
  Transmission Date: 20221026
  Serious: No
  Sender: FDA-Public Use
  Company Number: US-Blueprint Medicines Corporation-355

PATIENT
  Sex: Female

DRUGS (1)
  1. AYVAKIT [Suspect]
     Active Substance: AVAPRITINIB
     Indication: Brain neoplasm malignant
     Route: 048
     Dates: start: 20220802

REACTIONS (7)
  - Swelling of eyelid [Unknown]
  - Nausea [Recovering/Resolving]
  - Tremor [Unknown]
  - Vomiting [Unknown]
  - Insomnia [Unknown]
  - Unevaluable event [Recovering/Resolving]
  - Off label use [Unknown]
